FAERS Safety Report 14577963 (Version 1)
Quarter: 2018Q1

REPORT INFORMATION
  Report Type: Spontaneous
  Country: US (occurrence: US)
  Receive Date: 20180227
  Receipt Date: 20180227
  Transmission Date: 20180509
  Serious: Yes (Hospitalization, Other)
  Sender: FDA-Public Use
  Company Number: US-LEXICON PHARMACEUTICALS, INC-18-1606-00202

PATIENT
  Age: 66 Year
  Sex: Male

DRUGS (1)
  1. TELOTRISTAT ETHYL [Suspect]
     Active Substance: TELOTRISTAT ETHYL
     Indication: CARCINOID TUMOUR
     Route: 048
     Dates: start: 20170810

REACTIONS (18)
  - Protein total decreased [Unknown]
  - Blood albumin decreased [Unknown]
  - N-terminal prohormone brain natriuretic peptide increased [Unknown]
  - Red blood cell count decreased [Unknown]
  - International normalised ratio increased [Unknown]
  - Cholelithiasis [Unknown]
  - Abdominal lymphadenopathy [Unknown]
  - Abdominal pain [Unknown]
  - Abdominal pain upper [Unknown]
  - Lymphadenopathy [Unknown]
  - Chronic obstructive pulmonary disease [Unknown]
  - Hospitalisation [Unknown]
  - Blood calcium decreased [Unknown]
  - Fatigue [Unknown]
  - Haemoglobin decreased [Unknown]
  - Prothrombin time prolonged [Unknown]
  - Blood urea increased [Unknown]
  - Haematocrit decreased [Unknown]

NARRATIVE: CASE EVENT DATE: 201801
